FAERS Safety Report 4949411-6 (Version None)
Quarter: 2006Q1

REPORT INFORMATION
  Report Type: 
  Country: None (occurrence: None)
  Receive Date: 20060321
  Receipt Date: 20050815
  Transmission Date: 20060701
  Serious: Yes (Hospitalization)
  Sender: FDA-Public Use
  Company Number: 200512596EU

PATIENT
  Age: 82 Year
  Sex: Male

DRUGS (18)
  1. RAMIPRIL [Suspect]
     Indication: HYPERTENSION
     Route: 048
     Dates: end: 20050721
  2. GLIMEPIRIDE [Suspect]
     Indication: DIABETES MELLITUS NON-INSULIN-DEPENDENT
     Route: 048
     Dates: start: 20041223, end: 20050807
  3. MELOXICAM [Suspect]
     Indication: ANALGESIC EFFECT
     Route: 048
     Dates: start: 20050210, end: 20050306
  4. MELOXICAM [Suspect]
     Indication: OSTEOARTHRITIS
     Route: 048
     Dates: start: 20050210, end: 20050306
  5. MELOXICAM [Suspect]
     Route: 048
     Dates: start: 20050407, end: 20050720
  6. CO-DYDRAMOL [Concomitant]
     Indication: OSTEOARTHRITIS
     Route: 048
  7. THEOPHYLLINE [Concomitant]
     Indication: CHRONIC OBSTRUCTIVE PULMONARY DISEASE
     Route: 048
  8. GABAPENTIN [Concomitant]
     Indication: NEURALGIA
     Route: 048
  9. CALCICHEW D3 [Concomitant]
     Indication: VITAMIN D DEFICIENCY
     Route: 048
  10. ATROVENT [Concomitant]
     Indication: CHRONIC OBSTRUCTIVE PULMONARY DISEASE
     Route: 055
  11. SERETIDE [Concomitant]
     Indication: CHRONIC OBSTRUCTIVE PULMONARY DISEASE
     Route: 055
  12. VENTOLIN [Concomitant]
     Indication: CHRONIC OBSTRUCTIVE PULMONARY DISEASE
     Route: 055
  13. RABEPRAZOLE SODIUM [Concomitant]
     Indication: PROPHYLAXIS
     Route: 048
     Dates: start: 20050210, end: 20050306
  14. RABEPRAZOLE SODIUM [Concomitant]
     Indication: STOMACH DISCOMFORT
     Route: 048
     Dates: start: 20050210, end: 20050306
  15. RABEPRAZOLE SODIUM [Concomitant]
     Route: 048
     Dates: start: 20050407
  16. ACETYLSALICYLIC ACID SRT [Concomitant]
     Indication: PROPHYLAXIS
     Route: 048
     Dates: start: 20050510
  17. DOXAZOSIN [Concomitant]
     Indication: PROSTATISM
     Route: 048
     Dates: start: 20050510
  18. SIMVASTATIN [Concomitant]
     Indication: HYPERCHOLESTEROLAEMIA
     Route: 048

REACTIONS (3)
  - BLOOD CREATININE INCREASED [None]
  - BLOOD POTASSIUM INCREASED [None]
  - RENAL FUNCTION TEST ABNORMAL [None]
